FAERS Safety Report 20536452 (Version 1)
Quarter: 2022Q1

REPORT INFORMATION
  Report Type: Spontaneous
  Country: ES (occurrence: ES)
  Receive Date: 20220302
  Receipt Date: 20220302
  Transmission Date: 20220423
  Serious: Yes (Hospitalization, Other)
  Sender: FDA-Public Use
  Company Number: ES-ESTEVE-2021-00187

PATIENT
  Age: 61 Year
  Sex: Male
  Weight: 80 kg

DRUGS (22)
  1. FENTANYL [Interacting]
     Active Substance: FENTANYL
     Indication: Product used for unknown indication
     Route: 065
     Dates: start: 20190709
  2. ALPRAZOLAM [Suspect]
     Active Substance: ALPRAZOLAM
     Indication: Product used for unknown indication
     Route: 065
     Dates: start: 20191002
  3. LORAZEPAM [Suspect]
     Active Substance: LORAZEPAM
     Indication: Product used for unknown indication
     Route: 065
     Dates: start: 20191010
  4. DIAZEPAM [Suspect]
     Active Substance: DIAZEPAM
     Indication: Product used for unknown indication
     Route: 065
     Dates: start: 20190912
  5. METHADONE [Suspect]
     Active Substance: METHADONE HYDROCHLORIDE
     Indication: Product used for unknown indication
     Route: 065
  6. ENOXAPARINE BECAT [Concomitant]
     Dosage: UNK
     Dates: start: 2018
  7. EPLERENONE [Concomitant]
     Active Substance: EPLERENONE
     Dosage: UNK
     Dates: start: 2018
  8. VALSARTAN [Concomitant]
     Active Substance: VALSARTAN
     Dosage: UNK
     Dates: start: 2018
  9. PROPILTIOURACILE [Concomitant]
     Dosage: UNK
     Dates: start: 20200507
  10. AMLODIPINE [Concomitant]
     Active Substance: AMLODIPINE BESYLATE
     Dosage: UNK
     Dates: start: 2018
  11. BISOPROLOL [Concomitant]
     Active Substance: BISOPROLOL
     Dosage: UNK
     Dates: start: 2018
  12. AMIODARONE [Concomitant]
     Active Substance: AMIODARONE
     Dosage: UNK
     Dates: start: 201808
  13. BETAMETHASONE DIPROPIONATE\GENTAMICIN SULFATE [Concomitant]
     Active Substance: BETAMETHASONE DIPROPIONATE\GENTAMICIN SULFATE
     Route: 065
     Dates: start: 20210419
  14. ENOXAPARINE BECAT [Concomitant]
     Dates: start: 2018
  15. EPLERENONE [Concomitant]
     Active Substance: EPLERENONE
     Route: 065
     Dates: start: 2018
  16. VALSARTAN [Concomitant]
     Active Substance: VALSARTAN
     Dates: start: 2018
  17. PROPILTIOURACILE [Concomitant]
     Dates: start: 20200507
  18. ORABASE [DEXAMETHASONE] [Concomitant]
     Dates: start: 20210419
  19. AMLODIPINE [Concomitant]
     Active Substance: AMLODIPINE BESYLATE
     Dates: start: 2018
  20. BISOPROLOL [Concomitant]
     Active Substance: BISOPROLOL
     Dates: start: 2018
  21. AMIODARONE [Concomitant]
     Active Substance: AMIODARONE
     Dates: start: 201808
  22. PREDNISONE [Concomitant]
     Active Substance: PREDNISONE
     Dates: start: 20210520

REACTIONS (3)
  - Toxicity to various agents [Recovered/Resolved]
  - Drug interaction [Unknown]
  - Confusional state [Recovered/Resolved]

NARRATIVE: CASE EVENT DATE: 20210801
